FAERS Safety Report 6903842-3 (Version None)
Quarter: 2010Q3

REPORT INFORMATION
  Report Type: 
  Country: None (occurrence: None)
  Receive Date: 20100804
  Receipt Date: 20090114
  Transmission Date: 20110219
  Serious: No
  Sender: FDA-Public Use
  Company Number: US-PFIZER INC-2008097386

PATIENT
  Sex: Female
  Weight: 66.667 kg

DRUGS (6)
  1. LYRICA [Suspect]
     Indication: HERPES ZOSTER
     Dosage: 75 MG, 2X/DAY
     Route: 048
     Dates: start: 20081024, end: 20081112
  2. LYRICA [Suspect]
     Indication: PAIN
  3. TOPROL-XL [Concomitant]
     Indication: CARDIAC DISORDER
     Dosage: 25 MG, 1X/DAY
  4. ACETAMINOPHEN, ASPIRIN AND CAFFEINE [Concomitant]
  5. TYLENOL [Concomitant]
  6. VALTREX [Concomitant]
     Dosage: 500 MG, 2X/DAY

REACTIONS (9)
  - ANXIETY [None]
  - DIZZINESS [None]
  - FEELING ABNORMAL [None]
  - HEADACHE [None]
  - NAUSEA [None]
  - PHOTOPSIA [None]
  - SOMNOLENCE [None]
  - TREMOR [None]
  - VISION BLURRED [None]
